FAERS Safety Report 13913863 (Version 1)
Quarter: 2017Q3

REPORT INFORMATION
  Report Type: Spontaneous
  Country: US (occurrence: US)
  Receive Date: 20170829
  Receipt Date: 20170829
  Transmission Date: 20171127
  Serious: No
  Sender: FDA-Public Use
  Company Number: US-PFIZER INC-2017368236

PATIENT
  Age: 63 Year
  Sex: Female

DRUGS (2)
  1. LEVOXYL [Suspect]
     Active Substance: LEVOTHYROXINE SODIUM
     Dosage: 180 UG, DAILY
  2. METHOTREXATE. [Suspect]
     Active Substance: METHOTREXATE
     Dosage: 20 MG, WEEKLY (2.5MG 8 TABS WEEKLY)
     Route: 048

REACTIONS (12)
  - Hand deformity [Unknown]
  - Mucosal inflammation [Unknown]
  - Alanine aminotransferase increased [Unknown]
  - Arthralgia [Unknown]
  - Joint stiffness [Unknown]
  - Swelling [Unknown]
  - Pain [Unknown]
  - Synovitis [Unknown]
  - Abdominal distension [Unknown]
  - Red cell distribution width increased [Unknown]
  - Musculoskeletal stiffness [Unknown]
  - Joint range of motion decreased [Unknown]
